FAERS Safety Report 22599887 (Version 3)
Quarter: 2023Q2

REPORT INFORMATION
  Report Type: Spontaneous
  Country: US (occurrence: US)
  Receive Date: 20230614
  Receipt Date: 20230621
  Transmission Date: 20230722
  Serious: Yes (Other)
  Sender: FDA-Public Use
  Company Number: US-SA-SAC20230613000396

PATIENT
  Sex: Female

DRUGS (1)
  1. DUPIXENT [Suspect]
     Active Substance: DUPILUMAB
     Indication: Neurodermatitis
     Dosage: 300 MG, QW
     Route: 058

REACTIONS (6)
  - Breast cancer [Unknown]
  - Condition aggravated [Unknown]
  - Inflammation [Unknown]
  - Pain [Unknown]
  - Lymphadenopathy [Unknown]
  - Off label use [Unknown]
